FAERS Safety Report 7445752-1 (Version None)
Quarter: 2011Q2

REPORT INFORMATION
  Report Type: 
  Country: None (occurrence: None)
  Receive Date: 20110429
  Receipt Date: 20100414
  Transmission Date: 20111010
  Serious: No
  Sender: FDA-Public Use
  Company Number: US-ASTRAZENECA-2010SE16658

PATIENT
  Sex: Male

DRUGS (1)
  1. NEXIUM [Suspect]
     Route: 048
     Dates: start: 20100401

REACTIONS (4)
  - ERUCTATION [None]
  - DYSPHAGIA [None]
  - SALIVARY HYPERSECRETION [None]
  - OROPHARYNGEAL PAIN [None]
